FAERS Safety Report 15890464 (Version 1)
Quarter: 2019Q1

REPORT INFORMATION
  Report Type: Spontaneous
  Country: US (occurrence: US)
  Receive Date: 20190130
  Receipt Date: 20190130
  Transmission Date: 20190417
  Serious: Yes (Hospitalization)
  Sender: FDA-Public Use
  Company Number: None

PATIENT
  Age: 31 Year
  Sex: Male

DRUGS (7)
  1. CREON [Concomitant]
     Active Substance: PANCRELIPASE AMYLASE\PANCRELIPASE LIPASE\PANCRELIPASE PROTEASE
  2. OXYCONTIN 10MG [Concomitant]
  3. BETHKIS [Suspect]
     Active Substance: TOBRAMYCIN
     Indication: CYSTIC FIBROSIS
     Route: 055
     Dates: start: 20180804, end: 20190130
  4. VITAMIN D 500000 [Concomitant]
  5. PROAIR HFA [Concomitant]
     Active Substance: ALBUTEROL SULFATE
  6. PULMOZYME [Concomitant]
     Active Substance: DORNASE ALFA
  7. MELOXICAM 7.5 [Concomitant]
     Active Substance: MELOXICAM

REACTIONS (2)
  - Therapy cessation [None]
  - Infection [None]

NARRATIVE: CASE EVENT DATE: 20190130
